FAERS Safety Report 4806435-7 (Version None)
Quarter: 2005Q4

REPORT INFORMATION
  Report Type: 
  Country: None (occurrence: None)
  Receive Date: 20051019
  Receipt Date: 20051019
  Transmission Date: 20060501
  Serious: Yes (Life-Threatening)
  Sender: FDA-Public Use
  Company Number: None

PATIENT
  Age: 44 Year
  Sex: Female
  Weight: 68.0396 kg

DRUGS (3)
  1. EFFEXOR [Suspect]
     Indication: ANXIETY
     Dosage: 1/X DAY    PO
     Route: 048
     Dates: start: 20050901, end: 20050914
  2. EFFEXOR [Suspect]
     Indication: DEPRESSION
     Dosage: 1/X DAY    PO
     Route: 048
     Dates: start: 20050901, end: 20050914
  3. REQUIP [Suspect]
     Indication: RESTLESS LEGS SYNDROME
     Dosage: 1X/DAY    PO
     Route: 048
     Dates: start: 20050822, end: 20050914

REACTIONS (5)
  - BODY TEMPERATURE DECREASED [None]
  - COORDINATION ABNORMAL [None]
  - HEART RATE INCREASED [None]
  - HYPERHIDROSIS [None]
  - HYPOTENSION [None]
